FAERS Safety Report 8792714 (Version 2)
Quarter: 2013Q4

REPORT INFORMATION
  Report Type: Spontaneous
  Country: DE (occurrence: DE)
  Receive Date: 20120918
  Receipt Date: 20131031
  Transmission Date: 20140711
  Serious: Yes (Congenital Anomaly)
  Sender: FDA-Public Use
  Company Number: DE-009507513-1209DEU004039

PATIENT
  Sex: 0

DRUGS (17)
  1. INEGY [Suspect]
     Indication: HYPERCHOLESTEROLAEMIA
     Dosage: 40 MG/D / 10 MG/D, QD
     Route: 064
     Dates: start: 20111214, end: 20120320
  2. DELIX (PHENYLPROPANOLAMINE HYDROCHLORIDE (+) PHOLCODINE (+) PROMETHAZI [Suspect]
     Indication: NEPHROTIC SYNDROME
     Dosage: 20 MG, QD
     Route: 064
     Dates: start: 20111214, end: 20120320
  3. QUENSYL [Suspect]
     Indication: SYSTEMIC LUPUS ERYTHEMATOSUS
     Dosage: 400 MG, QD
     Route: 064
     Dates: start: 20111214, end: 20120320
  4. TOREM [Suspect]
     Indication: NEPHROTIC SYNDROME
     Dosage: 100 MG, QD
     Route: 064
     Dates: start: 20111214, end: 20120320
  5. ADVAGRAF [Suspect]
     Indication: SYSTEMIC LUPUS ERYTHEMATOSUS
     Dosage: 6 MG, QD
     Route: 064
  6. RITUXIMAB [Suspect]
     Indication: SYSTEMIC LUPUS ERYTHEMATOSUS
     Route: 064
  7. CYCLOPHOSPHAMIDE [Concomitant]
     Indication: SYSTEMIC LUPUS ERYTHEMATOSUS
     Dosage: 3000 MG CUMULATIVE
     Route: 064
     Dates: start: 201104, end: 201108
  8. CLEXANE (ENOXAPARIN SODIUM) [Concomitant]
     Indication: PULMONARY EMBOLISM
     Dosage: 200 MG/D
     Route: 064
     Dates: start: 20111214, end: 20120320
  9. PREDNISOLON [Concomitant]
     Indication: SYSTEMIC LUPUS ERYTHEMATOSUS
     Dosage: 10 MG, QOD
     Route: 064
     Dates: start: 20111214, end: 20120320
  10. ASPIRIN [Concomitant]
     Indication: VENA CAVA THROMBOSIS
     Dosage: 100 MG, QD
     Route: 064
     Dates: start: 20111214, end: 20120320
  11. PANTOZOL [Concomitant]
     Indication: GASTRITIS PROPHYLAXIS
     Dosage: 40 MG, QD
     Route: 064
     Dates: start: 20111214, end: 20120320
  12. RASILEZ [Concomitant]
     Indication: HYPERTENSION
     Dosage: 300 MG, QD
     Route: 064
     Dates: start: 20111214, end: 20120117
  13. ALBUTEROL [Concomitant]
     Indication: ASTHMA
     Dosage: UNK, PRN
     Route: 064
  14. NOVAMINSULFON [Concomitant]
     Indication: PAIN
     Route: 064
  15. MIFEGYNE [Concomitant]
     Indication: ABORTION INDUCED
     Dosage: UNK
     Route: 064
     Dates: start: 20120320, end: 20120320
  16. CYTOTEC [Concomitant]
     Indication: ABORTION INDUCED
     Dosage: UNK
     Route: 064
     Dates: start: 20120320, end: 20120320
  17. XARELTO [Concomitant]
     Indication: VENA CAVA THROMBOSIS
     Route: 064

REACTIONS (3)
  - Ventricular septal defect [Not Recovered/Not Resolved]
  - Truncus arteriosus persistent [Not Recovered/Not Resolved]
  - Foetal exposure during pregnancy [Unknown]
